FAERS Safety Report 24578900 (Version 1)
Quarter: 2024Q4

REPORT INFORMATION
  Report Type: Spontaneous
  Country: CA (occurrence: None)
  Receive Date: 20241105
  Receipt Date: 20241105
  Transmission Date: 20250115
  Serious: Yes (Other)
  Sender: ORION
  Company Number: CA-PFIZER INC-202400292308

PATIENT
  Age: 64 Year
  Sex: Female

DRUGS (6)
  1. METHOTREXATE [Suspect]
     Active Substance: METHOTREXATE
     Indication: Product used for unknown indication
  2. PANTOPRAZOLE [Concomitant]
     Active Substance: PANTOPRAZOLE
  3. VITAMIN D [Concomitant]
     Active Substance: VITAMIN D NOS
  4. FOLIC ACID [Concomitant]
     Active Substance: FOLIC ACID
  5. PREDNISONE [Concomitant]
     Active Substance: PREDNISONE
  6. RUXIENCE [Concomitant]
     Active Substance: RITUXIMAB-PVVR
     Indication: Granulomatosis with polyangiitis
     Dates: start: 20240528

REACTIONS (1)
  - Rotator cuff syndrome [Unknown]
